FAERS Safety Report 9718651 (Version 1)
Quarter: 2013Q4

REPORT INFORMATION
  Report Type: Spontaneous
  Country: US (occurrence: US)
  Receive Date: 20131125
  Receipt Date: 20131125
  Transmission Date: 20140711
  Serious: No
  Sender: FDA-Public Use
  Company Number: US-VIVUS-2013V1000032

PATIENT
  Sex: Female

DRUGS (1)
  1. QSYMIA 3.75MG/23MG [Suspect]
     Indication: WEIGHT DECREASED
     Dosage: DAILY DOSE: 1 CAPSULE,
     Route: 048
     Dates: start: 20130107, end: 20130112

REACTIONS (3)
  - Asthenia [Recovering/Resolving]
  - Influenza like illness [Recovering/Resolving]
  - Paraesthesia [Unknown]
